FAERS Safety Report 24600915 (Version 1)
Quarter: 2024Q4

REPORT INFORMATION
  Report Type: Report from Study
  Country: US (occurrence: US)
  Receive Date: 20241110
  Receipt Date: 20241110
  Transmission Date: 20250115
  Serious: Yes (Other)
  Sender: ABBVIE
  Company Number: US-ABBVIE-5993315

PATIENT
  Age: 78 Year
  Sex: Male

DRUGS (1)
  1. RINVOQ [Suspect]
     Active Substance: UPADACITINIB
     Indication: Crohn^s disease
     Dosage: DISCONTINUED IN 2024
     Route: 048
     Dates: start: 20241018

REACTIONS (1)
  - Non-Hodgkin^s lymphoma [Recovering/Resolving]

NARRATIVE: CASE EVENT DATE: 20241025
